FAERS Safety Report 14358628 (Version 1)
Quarter: 2018Q1

REPORT INFORMATION
  Report Type: Spontaneous
  Country: US (occurrence: US)
  Receive Date: 20180105
  Receipt Date: 20180105
  Transmission Date: 20180509
  Serious: No
  Sender: FDA-Public Use
  Company Number: US-SA-2017SA239607

PATIENT
  Sex: Male

DRUGS (1)
  1. DUPIXENT [Suspect]
     Active Substance: DUPILUMAB
     Indication: MULTIPLE SCLEROSIS
     Dosage: DOSE:150 MILLIGRAM(S)/MILLILITRE
     Route: 058

REACTIONS (4)
  - Oral herpes [Unknown]
  - Liver disorder [Unknown]
  - Pyrexia [Unknown]
  - Dry eye [Unknown]
